FAERS Safety Report 7489106-0 (Version None)
Quarter: 2011Q2

REPORT INFORMATION
  Report Type: 
  Country: None (occurrence: None)
  Receive Date: 20110518
  Receipt Date: 20110504
  Transmission Date: 20111010
  Serious: No
  Sender: FDA-Public Use
  Company Number: US-B.I. PHARMACEUTICALS,INC./RIDGEFIELD-2011-BP-09484BP

PATIENT
  Sex: Female

DRUGS (7)
  1. MIRAPEX [Suspect]
     Dosage: 3 MG
     Route: 048
     Dates: start: 20110201, end: 20110301
  2. NAMENDA [Concomitant]
     Indication: MEMORY IMPAIRMENT
  3. MIRAPEX [Suspect]
     Indication: PARKINSON'S DISEASE
     Dosage: 0.75 MG
     Route: 048
     Dates: start: 20110101, end: 20110101
  4. MIRTAZAPIN [Concomitant]
     Indication: MEMORY IMPAIRMENT
  5. EXELON [Concomitant]
     Indication: MEMORY IMPAIRMENT
  6. MIRAPEX [Suspect]
     Dosage: 1.5 MG
     Route: 048
     Dates: start: 20110101, end: 20110201
  7. MIRAPEX [Suspect]
     Dosage: 4.5 MG
     Route: 048
     Dates: start: 20110301

REACTIONS (1)
  - DRUG INEFFECTIVE [None]
